FAERS Safety Report 6839467-8 (Version None)
Quarter: 2010Q3

REPORT INFORMATION
  Report Type: 
  Country: None (occurrence: None)
  Receive Date: 20100714
  Receipt Date: 20090714
  Transmission Date: 20110219
  Serious: No
  Sender: FDA-Public Use
  Company Number: A0796870A

PATIENT
  Age: 51 Year
  Sex: Female

DRUGS (4)
  1. FLOVENT [Suspect]
     Indication: ASTHMA
     Dosage: 1PUFF TWICE PER DAY
     Route: 055
     Dates: start: 20090601
  2. FLOVENT [Suspect]
     Route: 055
  3. SPIRIVA [Concomitant]
  4. VENTOLIN HFA [Concomitant]

REACTIONS (1)
  - DYSPHONIA [None]
